FAERS Safety Report 12797599 (Version 1)
Quarter: 2016Q3

REPORT INFORMATION
  Report Type: Spontaneous
  Country: US (occurrence: US)
  Receive Date: 20160929
  Receipt Date: 20160929
  Transmission Date: 20161109
  Serious: Yes (Life-Threatening, Disabling)
  Sender: FDA-Public Use
  Company Number: None

PATIENT
  Age: 33 Year
  Sex: Female
  Weight: 80.1 kg

DRUGS (1)
  1. NEXPLANON [Suspect]
     Active Substance: ETONOGESTREL
     Indication: CONTRACEPTION
     Dosage: ?          QUANTITY:1 INJECTION(S);OTHER FREQUENCY:IMPLANT;?
     Route: 058

REACTIONS (6)
  - Oligomenorrhoea [None]
  - Abdominal pain [None]
  - Mood swings [None]
  - Suicidal ideation [None]
  - Haemorrhage [None]
  - Depression [None]

NARRATIVE: CASE EVENT DATE: 20140717
